FAERS Safety Report 21157861 (Version 2)
Quarter: 2022Q3

REPORT INFORMATION
  Report Type: Spontaneous
  Country: ES (occurrence: ES)
  Receive Date: 20220801
  Receipt Date: 20220812
  Transmission Date: 20221026
  Serious: No
  Sender: FDA-Public Use
  Company Number: ES-NOVARTISPH-NVSC2022ES171858

PATIENT
  Age: 41 Year
  Sex: Male

DRUGS (6)
  1. ADALIMUMAB [Suspect]
     Active Substance: ADALIMUMAB
     Indication: Colitis ulcerative
     Dosage: UNK
     Route: 065
  2. ADALIMUMAB [Suspect]
     Active Substance: ADALIMUMAB
     Indication: Axial spondyloarthritis
  3. ADALIMUMAB [Suspect]
     Active Substance: ADALIMUMAB
     Indication: Peripheral spondyloarthritis
  4. INFLIXIMAB [Suspect]
     Active Substance: INFLIXIMAB
     Indication: Colitis ulcerative
     Dosage: UNK
     Route: 065
  5. INFLIXIMAB [Suspect]
     Active Substance: INFLIXIMAB
     Indication: Axial spondyloarthritis
  6. INFLIXIMAB [Suspect]
     Active Substance: INFLIXIMAB
     Indication: Peripheral spondyloarthritis

REACTIONS (2)
  - Drug intolerance [Unknown]
  - Product use in unapproved indication [Unknown]
